FAERS Safety Report 6928453-5 (Version None)
Quarter: 2010Q3

REPORT INFORMATION
  Report Type: 
  Country: None (occurrence: None)
  Receive Date: 20100806
  Receipt Date: 20100707
  Transmission Date: 20110219
  Serious: No
  Sender: FDA-Public Use
  Company Number: 2010-09147

PATIENT
  Age: 73 Year
  Sex: Female

DRUGS (4)
  1. RAPAFLO [Suspect]
     Indication: BLADDER DISORDER
     Dosage: 8 MG, DAILY, ORAL
     Route: 048
     Dates: start: 20100621, end: 20100624
  2. LASIX [Concomitant]
  3. POTASSIUM (POTASSIUM) [Concomitant]
  4. AMOX /00249601/ (AMOXICILLIN) [Concomitant]

REACTIONS (4)
  - ABDOMINAL PAIN LOWER [None]
  - CHROMATURIA [None]
  - DRUG INEFFECTIVE FOR UNAPPROVED INDICATION [None]
  - NASAL CONGESTION [None]
